FAERS Safety Report 22397312 (Version 1)
Quarter: 2023Q2

REPORT INFORMATION
  Report Type: Spontaneous
  Country: US (occurrence: None)
  Receive Date: 20230602
  Receipt Date: 20230602
  Transmission Date: 20230721
  Serious: Yes (Hospitalization)
  Sender: FDA-Public Use
  Company Number: US-ROCHE-3359168

PATIENT
  Age: 68 Year
  Sex: Female

DRUGS (6)
  1. XOLAIR [Suspect]
     Active Substance: OMALIZUMAB
     Indication: Product used for unknown indication
     Route: 065
  2. HUMAN IMMUNOGLOBULIN G [Suspect]
     Active Substance: HUMAN IMMUNOGLOBULIN G
     Indication: Product used for unknown indication
     Route: 042
  3. PHENOBARBITAL SODIUM [Concomitant]
     Active Substance: PHENOBARBITAL SODIUM
  4. APIXABAN [Concomitant]
     Active Substance: APIXABAN
  5. WARFARIN [Concomitant]
     Active Substance: WARFARIN
  6. APOAEQUORIN [Concomitant]

REACTIONS (12)
  - Hepatic lesion [Unknown]
  - Cardiac disorder [Unknown]
  - Vertigo [Unknown]
  - Ear infection viral [Unknown]
  - Coagulopathy [Unknown]
  - Protein deficiency [Unknown]
  - Lip swelling [Unknown]
  - Illness [Unknown]
  - Skin disorder [Unknown]
  - Swelling [Unknown]
  - Erythema [Unknown]
  - Urticaria [Unknown]

NARRATIVE: CASE EVENT DATE: 20230401
